FAERS Safety Report 4724825-8 (Version None)
Quarter: 2005Q3

REPORT INFORMATION
  Report Type: 
  Country: None (occurrence: None)
  Receive Date: 20050720
  Receipt Date: 20050720
  Transmission Date: 20060218
  Serious: Yes (Hospitalization)
  Sender: FDA-Public Use
  Company Number: None

PATIENT
  Age: 59 Year
  Sex: Female

DRUGS (25)
  1. CAMPTOSAR [Suspect]
     Indication: COLON CANCER METASTATIC
     Dosage: 190MG     IV
     Route: 042
     Dates: start: 20050408, end: 20050408
  2. ONDANSETRON HCL [Concomitant]
  3. CITALOPRAM HYDROBROMIDE [Concomitant]
  4. TRAZODONE HCL [Concomitant]
  5. SPIRONOLACTONE [Concomitant]
  6. ASCORBIC ACID [Concomitant]
  7. ATENOLOL [Concomitant]
  8. CLOPIDOGREL BISULFATE [Concomitant]
  9. CYPROHEPTADINE HCL [Concomitant]
  10. ENALAPRIL MALEATE [Concomitant]
  11. FUROSEMIDE [Concomitant]
  12. GATIFLOXACIN [Concomitant]
  13. GLIPIZIDE [Concomitant]
  14. LIDOCAINE HCL [Concomitant]
  15. MEGESTROL ACETATE [Concomitant]
  16. METFORMIN HCL [Concomitant]
  17. METOCLOPRAMIDE HCL [Concomitant]
  18. SENNA [Concomitant]
  19. TAMSULOSIN [Concomitant]
  20. IRBESARTAN [Concomitant]
  21. METRONIDAZOLE [Concomitant]
  22. MYLANTA/BENADRYL/XYLOCAINE [Concomitant]
  23. OMEPRAZOLE [Concomitant]
  24. MORPHINE SO4 [Concomitant]
  25. POTASSIUM CHLORIDE [Concomitant]

REACTIONS (6)
  - DIARRHOEA [None]
  - HAEMATOCRIT DECREASED [None]
  - HAEMOGLOBIN DECREASED [None]
  - NEUTROPENIA [None]
  - PLATELET COUNT DECREASED [None]
  - WHITE BLOOD CELL COUNT DECREASED [None]
